FAERS Safety Report 9971966 (Version 1)
Quarter: 2014Q1

REPORT INFORMATION
  Report Type: Spontaneous
  Country: US (occurrence: None)
  Receive Date: 20140305
  Receipt Date: 20140305
  Transmission Date: 20141002
  Serious: Yes (Other)
  Sender: FDA-Public Use
  Company Number: None

PATIENT
  Age: 32 Year
  Sex: Female
  Weight: 81.65 kg

DRUGS (1)
  1. LATUDA [Suspect]
     Indication: BIPOLAR I DISORDER

REACTIONS (14)
  - Tremor [None]
  - Confusional state [None]
  - Tinnitus [None]
  - Disorientation [None]
  - Agitation [None]
  - Restlessness [None]
  - Mental impairment [None]
  - Dizziness [None]
  - Vertigo [None]
  - Drug ineffective [None]
  - Anxiety [None]
  - Anger [None]
  - Weight increased [None]
  - Head titubation [None]
